FAERS Safety Report 8821238 (Version 1)
Quarter: 2012Q4

REPORT INFORMATION
  Report Type: 
  Country: CH (occurrence: CH)
  Receive Date: 20121002
  Receipt Date: 20121002
  Transmission Date: 20130627
  Serious: Yes (Hospitalization)
  Sender: FDA-Public Use
  Company Number: CH-BRISTOL-MYERS SQUIBB COMPANY-16988230

PATIENT
  Age: 54 Year
  Sex: Female

DRUGS (17)
  1. ETOPOPHOS [Suspect]
     Indication: MYELOPROLIFERATIVE DISORDER
     Dosage: 2482 mg total
     Route: 041
     Dates: start: 20120603
  2. SANDIMMUN [Suspect]
     Indication: BONE MARROW TRANSPLANT REJECTION
     Dosage: sandimmun infusionskonzentrat
stre:50mg
     Route: 041
     Dates: start: 20120606, end: 20120625
  3. SANDIMMUN NEORAL [Suspect]
     Indication: BONE MARROW TRANSPLANT REJECTION
     Dosage: Sandimmun infusionskonze ntrat 50mg IV drip:6Jun12-25jun12(20Days):250mg 1perday
     Route: 048
     Dates: start: 20120626
  4. METHOTREXATE [Suspect]
     Indication: BONE MARROW TRANSPLANT REJECTION
     Route: 041
     Dates: start: 20120608, end: 20120610
  5. PHENOXYMETHYLPENICILLIN POTASSIUM [Concomitant]
     Dosage: Tabs, Strenght:1MIU stabicilline
     Route: 048
  6. BACTRIM [Concomitant]
     Dosage: 1DF:800mg/160mg
     Route: 048
  7. FLUCONAZOLE [Concomitant]
  8. VALCYTE [Concomitant]
  9. URSOFALK [Concomitant]
  10. LEUCOVORIN [Concomitant]
  11. PREDNISONE [Concomitant]
  12. NEXIUM [Concomitant]
  13. VI-DE3 [Concomitant]
  14. CALCIMAGON-D3 [Concomitant]
  15. MAGNESIUM ASPARTATE [Concomitant]
  16. SODIUM HYALURONATE [Concomitant]
  17. THYMOGLOBULINE [Concomitant]
     Dosage: 150mg on day1, 200mg on day 2 and 3 (total dose:550mg)
     Dates: start: 20120602, end: 20120604

REACTIONS (3)
  - Intracranial pressure increased [Recovering/Resolving]
  - Condition aggravated [Recovering/Resolving]
  - Papilloedema [Recovering/Resolving]
